FAERS Safety Report 9251787 (Version 1)
Quarter: 2013Q1

REPORT INFORMATION
  Report Type: Spontaneous
  Country: US (occurrence: None)
  Receive Date: 20130305
  Receipt Date: 20130305
  Transmission Date: 20140127
  Serious: Yes (Other)
  Sender: FDA-Public Use
  Company Number: 163-21880-12092666

PATIENT
  Age: 81 Year
  Sex: Male
  Weight: 88 kg

DRUGS (8)
  1. REVLIMID (LENALIDOMIDE) (CAPSULES) [Suspect]
     Indication: PLASMA CELL MYELOMA
     Dosage: 15MG, QOD X 2 WEEKS, PO
     Route: 048
     Dates: start: 20120730
  2. FERROUS SULFATE (FERROUS SULFATE) [Concomitant]
  3. DOCUSATE (DOCUSATE) [Concomitant]
  4. FAMOTIDINE (FAMOTIDINE) [Concomitant]
  5. DEXAMETHASONE (DEXAMETHASONE) [Concomitant]
  6. TAZTIA XT (DILTIAZEM HYDROCHLORIDE) [Concomitant]
  7. ONDANSETRON (ONDANSETRON) [Concomitant]
  8. CENTRIUM (CENTRIUM) [Concomitant]

REACTIONS (2)
  - Rectal haemorrhage [None]
  - Thrombocytopenia [None]
